FAERS Safety Report 16340709 (Version 1)
Quarter: 2019Q2

REPORT INFORMATION
  Report Type: Spontaneous
  Country: US (occurrence: US)
  Receive Date: 20190522
  Receipt Date: 20190522
  Transmission Date: 20190711
  Serious: Yes (Other)
  Sender: FDA-Public Use
  Company Number: US-VELOXIS PHARMACEUTICALS, INC.-2019VELUS1526

PATIENT
  Sex: Female

DRUGS (4)
  1. ENVARSUS XR [Suspect]
     Active Substance: TACROLIMUS
     Indication: HEART AND LUNG TRANSPLANT
  2. TREPROSTINIL. [Concomitant]
     Active Substance: TREPROSTINIL
     Indication: PULMONARY ARTERIAL HYPERTENSION
     Dosage: UNK
     Route: 042
  3. MILRINONE [Concomitant]
     Active Substance: MILRINONE
     Indication: PULMONARY ARTERIAL HYPERTENSION
  4. SILDENAFIL. [Concomitant]
     Active Substance: SILDENAFIL
     Indication: PULMONARY ARTERIAL HYPERTENSION

REACTIONS (9)
  - Chest injury [Unknown]
  - Posterior reversible encephalopathy syndrome [Recovered/Resolved]
  - Intentional product use issue [Unknown]
  - Subarachnoid haemorrhage [Recovered/Resolved]
  - Acute respiratory distress syndrome [Unknown]
  - Acute kidney injury [Unknown]
  - Seizure [Recovered/Resolved]
  - Dependence on respirator [Unknown]
  - Pleural effusion [Unknown]
